FAERS Safety Report 23791504 (Version 2)
Quarter: 2024Q2

REPORT INFORMATION
  Report Type: Spontaneous
  Country: CN (occurrence: CN)
  Receive Date: 20240429
  Receipt Date: 20240618
  Transmission Date: 20240716
  Serious: Yes (Hospitalization)
  Sender: FDA-Public Use
  Company Number: CN-NOVOPROD-1208089

PATIENT
  Age: 71 Year
  Sex: Female

DRUGS (2)
  1. NOVOLIN R [Suspect]
     Active Substance: INSULIN HUMAN
     Indication: Type 2 diabetes mellitus
     Dosage: 12 IU, BID (12 U IN THE MORNING AND 12 U IN THE EVENING)
  2. GLUCOBAY [Concomitant]
     Active Substance: ACARBOSE
     Indication: Type 2 diabetes mellitus
     Dosage: 0.5 DF, BID (0.5 TABLET BEFORE LUNCH AND 0.5 TABLET BEFORE SUPPER)
     Route: 048

REACTIONS (3)
  - Fracture [Unknown]
  - Blood glucose increased [Recovered/Resolved]
  - Device delivery system issue [Unknown]

NARRATIVE: CASE EVENT DATE: 20240410
